FAERS Safety Report 16650709 (Version 2)
Quarter: 2019Q3

REPORT INFORMATION
  Report Type: Spontaneous
  Country: BE (occurrence: BE)
  Receive Date: 20190731
  Receipt Date: 20190911
  Transmission Date: 20191004
  Serious: Yes (Life-Threatening, Hospitalization, Congenital Anomaly)
  Sender: FDA-Public Use
  Company Number: BE-TEVA-2019-BE-1085875

PATIENT
  Age: 20 Year
  Sex: Male
  Weight: 105 kg

DRUGS (15)
  1. TRACRIUM [Concomitant]
     Active Substance: ATRACURIUM BESYLATE
     Indication: SURGERY
     Dosage: 50 MILLIGRAM PER 1 TOTAL
     Route: 042
     Dates: start: 20190311, end: 20190311
  2. KETAMINE [Concomitant]
     Active Substance: KETAMINE
     Indication: SURGERY
     Dosage: 100 MILLIGRAM PER 1 TOTAL
     Route: 042
     Dates: start: 20190311, end: 20190311
  3. PROPOLIPID 1% [Concomitant]
     Indication: INDUCTION OF ANAESTHESIA
     Dosage: 200 MILLIGRAM PER 1 TOTAL
     Route: 042
     Dates: start: 20190311, end: 20190311
  4. CATAPRESSAN [Concomitant]
     Active Substance: CLONIDINE
     Dosage: 300 MILLIGRAM PER 1 TOTAL
     Route: 042
     Dates: start: 20190311, end: 20190311
  5. IBUPROFEN. [Suspect]
     Active Substance: IBUPROFEN
     Indication: ANALGESIC THERAPY
     Dosage: UNKNOWN DOSE?3 TABLETS 3X/J PDT 3-4 DAYS POST OP ; 3 DOSAGE FORMS PER 1 DAY
     Route: 048
     Dates: start: 20190311, end: 20190314
  6. SEVORANE [Suspect]
     Active Substance: SEVOFLURANE
     Indication: GENERAL ANAESTHESIA
     Dosage: RECEIVED 40ML ON MARCH 11 DURING MAMMECTOMY?PREVIOUSLY THE PATIENT HAD ALREADY BEEN EXPOSED TO SEVOF
     Route: 055
     Dates: start: 20190311, end: 20190311
  7. CEFAZOLINE [Suspect]
     Active Substance: CEFAZOLIN SODIUM
     Indication: ANTIBIOTIC PROPHYLAXIS
     Dosage: 2 GRAM PER 1 TOTAL
     Route: 042
     Dates: start: 20190311, end: 20190311
  8. LITICAN [Concomitant]
     Active Substance: ALIZAPRIDE HYDROCHLORIDE
     Indication: NAUSEA
     Dosage: 50 MILLIGRAM PER 1 TOTAL
     Route: 042
     Dates: start: 20190311, end: 20190311
  9. PROPOLIPID 1% [Concomitant]
     Indication: SURGERY
  10. CEFAZOLINE [Suspect]
     Active Substance: CEFAZOLIN SODIUM
     Indication: SURGERY
  11. TARADYL [Concomitant]
     Active Substance: KETOROLAC TROMETHAMINE
     Indication: ANALGESIC THERAPY
     Dosage: 30 MILLIGRAM PER 1 TOTAL
     Route: 042
     Dates: start: 20190311, end: 20190311
  12. DEXAMETHASONE 4 MG [Concomitant]
     Active Substance: DEXAMETHASONE
     Indication: GASTROINTESTINAL DISORDER PROPHYLAXIS
     Dosage: 4 MILLIGRAM PER 1 TOTAL
     Route: 042
     Dates: start: 20190311, end: 20190311
  13. PARACETAMOL [Suspect]
     Active Substance: ACETAMINOPHEN
     Indication: ANALGESIC THERAPY
     Dosage: 2 GRAM PER 1 DAY
     Route: 048
     Dates: start: 20190311, end: 20190314
  14. LISINOPRIL. [Concomitant]
     Active Substance: LISINOPRIL
     Indication: SURGERY
     Dosage: LISINOPRIL 2%; 100 MILLIGRAM PER 1 TOTAL
     Route: 042
     Dates: start: 20190311, end: 20190311
  15. PARACETAMOL [Suspect]
     Active Substance: ACETAMINOPHEN
     Indication: PERIOPERATIVE ANALGESIA
     Dosage: 1 GM PER TOTAL
     Route: 042
     Dates: start: 20190311, end: 20190311

REACTIONS (1)
  - Hepatitis fulminant [Recovering/Resolving]

NARRATIVE: CASE EVENT DATE: 20190406
